FAERS Safety Report 6923356-4 (Version None)
Quarter: 2010Q3

REPORT INFORMATION
  Report Type: 
  Country: None (occurrence: None)
  Receive Date: 20100813
  Receipt Date: 20100810
  Transmission Date: 20110219
  Serious: Yes (Death, Other)
  Sender: FDA-Public Use
  Company Number: AT-CELGENEUS-009-20785-10042496

PATIENT

DRUGS (3)
  1. THALIDOMIDE [Suspect]
     Indication: MULTIPLE MYELOMA
     Dosage: RANGE 25-200 MG
     Route: 048
  2. INTERFERON [Concomitant]
     Indication: MULTIPLE MYELOMA
     Dosage: RANGE 3-9 MEGA UNIT
     Route: 065
  3. ZOLEDRONATE [Concomitant]
     Indication: PRODUCT USED FOR UNKNOWN INDICATION
     Route: 065

REACTIONS (18)
  - ANAEMIA [None]
  - CARDIOVASCULAR DISORDER [None]
  - CONSTIPATION [None]
  - DEATH [None]
  - DIARRHOEA [None]
  - DYSPNOEA [None]
  - EMBOLISM ARTERIAL [None]
  - FATIGUE [None]
  - INFECTION [None]
  - LEUKOPENIA [None]
  - MENTAL DISORDER [None]
  - NAUSEA [None]
  - NEUROPATHY PERIPHERAL [None]
  - OSTEONECROSIS OF JAW [None]
  - PYREXIA [None]
  - RENAL IMPAIRMENT [None]
  - SKIN TOXICITY [None]
  - THROMBOCYTOPENIA [None]
